FAERS Safety Report 7982685-6 (Version None)
Quarter: 2011Q4

REPORT INFORMATION
  Report Type: 
  Country: None (occurrence: None)
  Receive Date: 20111215
  Receipt Date: 20111212
  Transmission Date: 20120403
  Serious: Yes (Life-Threatening, Other)
  Sender: FDA-Public Use
  Company Number: CH-ROXANE LABORATORIES, INC.-2011-RO-01796RO

PATIENT
  Age: 4 Year
  Sex: Female

DRUGS (2)
  1. LORAZEPAM [Suspect]
     Indication: TONIC CONVULSION
     Route: 042
  2. DIAZEPAM ORAL SOLUTION USP, 5MG/5ML [Suspect]
     Indication: TONIC CONVULSION
     Route: 054

REACTIONS (2)
  - RESPIRATORY ACIDOSIS [None]
  - RESPIRATORY ARREST [None]
